FAERS Safety Report 13641381 (Version 5)
Quarter: 2017Q4

REPORT INFORMATION
  Report Type: Spontaneous
  Country: US (occurrence: US)
  Receive Date: 20170612
  Receipt Date: 20171013
  Transmission Date: 20180320
  Serious: Yes (Hospitalization, Other)
  Sender: FDA-Public Use
  Company Number: US-009507513-1706USA002874

PATIENT
  Sex: Female
  Weight: 95.24 kg

DRUGS (1)
  1. NUVARING [Suspect]
     Active Substance: ETHINYL ESTRADIOL\ETONOGESTREL
     Indication: CONTRACEPTION
     Dosage: 1 DF, QM
     Route: 067
     Dates: start: 20090920, end: 20150617

REACTIONS (29)
  - Hernia [Unknown]
  - Anaemia [Unknown]
  - Gastrooesophageal reflux disease [Unknown]
  - Pain [Unknown]
  - Irritable bowel syndrome [Unknown]
  - Blood potassium decreased [Unknown]
  - Depression [Unknown]
  - Dysmenorrhoea [Unknown]
  - Deep vein thrombosis [Unknown]
  - Urinary tract infection [Unknown]
  - Anticoagulation drug level above therapeutic [Unknown]
  - Abdominal hernia [Unknown]
  - Umbilical hernia [Unknown]
  - Cholecystectomy [Unknown]
  - Pneumonia bacterial [Unknown]
  - Coagulopathy [Unknown]
  - Anaemia [Unknown]
  - Deep vein thrombosis [Not Recovered/Not Resolved]
  - Hypertension [Unknown]
  - Pelvic congestion [Not Recovered/Not Resolved]
  - Menstruation irregular [Unknown]
  - Leukocytosis [Unknown]
  - Coagulopathy [Unknown]
  - Sinusitis [Not Recovered/Not Resolved]
  - Hypersensitivity [Not Recovered/Not Resolved]
  - Anxiety [Unknown]
  - Pelvic venous thrombosis [Unknown]
  - Lumbar radiculopathy [Unknown]
  - Pain management [Unknown]

NARRATIVE: CASE EVENT DATE: 20130619
